FAERS Safety Report 9775513 (Version 1)
Quarter: 2013Q4

REPORT INFORMATION
  Report Type: Spontaneous
  Country: US (occurrence: US)
  Receive Date: 20131220
  Receipt Date: 20131220
  Transmission Date: 20140711
  Serious: Yes (Congenital Anomaly, Other)
  Sender: FDA-Public Use
  Company Number: US-PFIZER INC-2013363592

PATIENT
  Sex: Male

DRUGS (18)
  1. ZOLOFT [Suspect]
     Dosage: UNK
     Route: 064
     Dates: start: 2000
  2. LEXAPRO [Concomitant]
     Dosage: UNK
     Route: 064
  3. WELLBUTRIN [Concomitant]
     Dosage: UNK
     Route: 064
  4. PROMETRIUM [Concomitant]
     Dosage: UNK
     Route: 064
  5. HYDROCODONE [Concomitant]
     Dosage: UNK
     Route: 064
  6. PRENATAL VITAMINS [Concomitant]
     Dosage: UNK
     Route: 064
  7. AMOXICILLIN [Concomitant]
     Dosage: UNK
     Route: 064
  8. IBUPROFEN [Concomitant]
     Route: 064
  9. CLOTRIMAZOLE [Concomitant]
     Dosage: UNK
     Route: 064
  10. GLYBURIDE [Concomitant]
     Dosage: UNK
     Route: 064
  11. PROZAC [Concomitant]
     Dosage: UNK
     Route: 064
  12. PROGESTERONE [Concomitant]
     Dosage: UNK
     Route: 064
  13. GUAIFENEX [Concomitant]
     Dosage: UNK
     Route: 064
  14. GLUCOPHAGE [Concomitant]
     Dosage: UNK
     Route: 064
  15. PHENERGAN [Concomitant]
     Dosage: UNK
     Route: 064
  16. ZITHROMAX [Concomitant]
     Dosage: UNK
     Route: 064
  17. DIFLUCAN [Concomitant]
     Dosage: UNK
     Route: 064
  18. TAMIFLU [Concomitant]
     Dosage: UNK
     Route: 064

REACTIONS (10)
  - Maternal exposure during pregnancy [Unknown]
  - Spine malformation [Unknown]
  - Premature baby [Unknown]
  - Atrial septal defect [Unknown]
  - Congenital scoliosis [Unknown]
  - Renal fusion anomaly [Unknown]
  - Ectopic kidney [Unknown]
  - Gastrooesophageal reflux disease [Unknown]
  - Feeding disorder [Unknown]
  - Speech disorder [Unknown]
